FAERS Safety Report 15902148 (Version 2)
Quarter: 2019Q1

REPORT INFORMATION
  Report Type: Report from Study
  Country: US (occurrence: US)
  Receive Date: 20190201
  Receipt Date: 20190213
  Transmission Date: 20190417
  Serious: Yes (Death, Hospitalization)
  Sender: FDA-Public Use
  Company Number: US-ACTELION-A-US2017-162270

PATIENT
  Age: 81 Year
  Sex: Female
  Weight: 67.12 kg

DRUGS (3)
  1. UPTRAVI [Suspect]
     Active Substance: SELEXIPAG
     Indication: PULMONARY ARTERIAL HYPERTENSION
     Dosage: 600 MCG, BID
     Route: 048
  2. UPTRAVI [Suspect]
     Active Substance: SELEXIPAG
     Dosage: 400 MCG, BID
     Route: 048
     Dates: end: 20180922
  3. OPSUMIT [Suspect]
     Active Substance: MACITENTAN
     Indication: PULMONARY ARTERIAL HYPERTENSION
     Dosage: 10 MG, UNK
     Route: 048

REACTIONS (12)
  - Diarrhoea [Unknown]
  - Syncope [Unknown]
  - Headache [Unknown]
  - Blood pressure diastolic decreased [Unknown]
  - Loss of consciousness [Unknown]
  - Fluid retention [Unknown]
  - Abdominal pain upper [Unknown]
  - Left ventricular failure [Fatal]
  - Weight decreased [Unknown]
  - Malaise [Unknown]
  - Anaemia [Unknown]
  - Decreased appetite [Unknown]

NARRATIVE: CASE EVENT DATE: 20180919
